FAERS Safety Report 4548612-9 (Version None)
Quarter: 2005Q1

REPORT INFORMATION
  Report Type: 
  Country: None (occurrence: None)
  Receive Date: 20041227
  Receipt Date: 20040915
  Transmission Date: 20050727
  Serious: No
  Sender: FDA-Public Use
  Company Number: 04P-163-0273380-00

PATIENT
  Age: 52 Year
  Sex: Female
  Weight: 80.2867 kg

DRUGS (12)
  1. HUMIRA [Suspect]
     Indication: RHEUMATOID ARTHRITIS
     Dosage: 40 MG, 1 IN 2 WK, SUBCUTANEOUS
     Route: 058
     Dates: start: 20040401
  2. METHOTREXATE [Concomitant]
  3. ATENOLOL [Concomitant]
  4. RABEPRAZOLE SODIUM [Concomitant]
  5. VENLAFAXINE HCL [Concomitant]
  6. SIMVASTATIN [Concomitant]
  7. TRAZODONE [Concomitant]
  8. FOLIC ACID [Concomitant]
  9. BUCINDOLOL HYDROCHLORIDE [Concomitant]
  10. TIZANIDINE [Concomitant]
  11. ACETAMINOPHEN [Concomitant]
  12. DICYCLOMINE HCL [Concomitant]

REACTIONS (7)
  - BLOOD GLUCOSE INCREASED [None]
  - CRYING [None]
  - FEELING ABNORMAL [None]
  - HEPATIC ENZYME INCREASED [None]
  - INJECTION SITE HAEMORRHAGE [None]
  - RASH [None]
  - SKIN BURNING SENSATION [None]
